FAERS Safety Report 5113749-2 (Version None)
Quarter: 2006Q3

REPORT INFORMATION
  Report Type: 
  Country: None (occurrence: None)
  Receive Date: 20060921
  Receipt Date: 20060921
  Transmission Date: 20061208
  Serious: Yes (Hospitalization)
  Sender: FDA-Public Use
  Company Number: None

PATIENT
  Sex: Male
  Weight: 99.5 kg

DRUGS (23)
  1. TACROLIMUS [Suspect]
     Indication: IMMUNOSUPPRESSANT DRUG THERAPY
     Dosage: 20 MG AM 15 MG PM
  2. AMLODIPINE [Concomitant]
  3. CALCIUM CARB [Concomitant]
  4. CHLORHEXIDINE [Concomitant]
  5. REGULAR INSULIN [Concomitant]
  6. DOCUSATE [Concomitant]
  7. FE SULFATE [Concomitant]
  8. FOLIC ACID [Concomitant]
  9. GENTAMICIN [Concomitant]
  10. HYDROCHLOROTHIAZIDE [Concomitant]
  11. LANSOPRAZOLE [Concomitant]
  12. MG OXIDE [Concomitant]
  13. M.V.I. [Concomitant]
  14. MYCOPLENOLATE [Concomitant]
  15. PHYTONADIONE [Concomitant]
  16. PRAVASTATIN [Concomitant]
  17. PREDNISONE [Concomitant]
  18. SODIUM POLYSTYRENE [Concomitant]
  19. . [Concomitant]
  20. TAMSULOSIN HCL [Concomitant]
  21. BACTRIM [Concomitant]
  22. VANCOMYCIN [Concomitant]
  23. VALACYCLOVIR [Concomitant]

REACTIONS (2)
  - IMMUNOSUPPRESSANT DRUG LEVEL INCREASED [None]
  - TREMOR [None]
